FAERS Safety Report 6037790-0 (Version None)
Quarter: 2009Q1

REPORT INFORMATION
  Report Type: 
  Country: None (occurrence: None)
  Receive Date: 20090114
  Receipt Date: 20081229
  Transmission Date: 20090719
  Serious: Yes (Hospitalization)
  Sender: FDA-Public Use
  Company Number: 2008S1022871

PATIENT
  Age: 46 Year
  Sex: Male

DRUGS (5)
  1. CIPROFLOXACIN [Suspect]
     Indication: UROSEPSIS
     Dosage: 400 MG;TWICE A DAY; INTRAVENOUS
     Route: 042
  2. CLOZAPINE [Suspect]
     Indication: SCHIZOPHRENIA, PARANOID TYPE
     Dosage: 900 MG;DAILY
  3. CITALOPRAM HYDROBROMIDE [Concomitant]
  4. LORAZEPAM [Concomitant]
  5. VALPROIC ACID [Concomitant]

REACTIONS (1)
  - RHABDOMYOLYSIS [None]
